FAERS Safety Report 13354496 (Version 1)
Quarter: 2017Q1

REPORT INFORMATION
  Report Type: Other
  Country: NO (occurrence: NO)
  Receive Date: 20170321
  Receipt Date: 20170321
  Transmission Date: 20170429
  Serious: Yes (Disabling)
  Sender: FDA-Public Use
  Company Number: NO-HIKMA PHARMACEUTICALS CO. LTD-2017NO003384

PATIENT

DRUGS (1)
  1. INFLECTRA [Suspect]
     Active Substance: INFLIXIMAB-DYYB
     Indication: PRODUCT USED FOR UNKNOWN INDICATION
     Dosage: UNK
     Route: 042
     Dates: start: 20161213, end: 20170213

REACTIONS (2)
  - Bronchial hyperreactivity [Unknown]
  - Chest pain [Unknown]

NARRATIVE: CASE EVENT DATE: 20161215
